FAERS Safety Report 5059791-1 (Version None)
Quarter: 2006Q3

REPORT INFORMATION
  Report Type: 
  Country: None (occurrence: None)
  Receive Date: 20060724
  Receipt Date: 20060222
  Transmission Date: 20061208
  Serious: Yes (Other)
  Sender: FDA-Public Use
  Company Number: GB-GLAXOSMITHKLINE-B0413176A

PATIENT
  Age: 74 Year
  Sex: Male
  Weight: 94.7 kg

DRUGS (6)
  1. AVANDIA [Suspect]
     Route: 048
     Dates: start: 20010813
  2. GLICLAZIDE [Concomitant]
  3. RAMIPRIL [Concomitant]
  4. CLOPIDOGREL [Concomitant]
  5. ATENOLOL [Concomitant]
  6. ASPIRIN [Concomitant]

REACTIONS (21)
  - AMAUROSIS FUGAX [None]
  - ANGIONEUROTIC OEDEMA [None]
  - ARTERIOPATHIC DISEASE [None]
  - BLINDNESS [None]
  - CAROTID ARTERY DISEASE [None]
  - CAROTID ARTERY STENOSIS [None]
  - CATARACT [None]
  - DIABETIC RETINOPATHY [None]
  - LENTICULAR OPACITIES [None]
  - MACULOPATHY [None]
  - NAUSEA [None]
  - PAPILLOEDEMA [None]
  - RETINAL ARTERY EMBOLISM [None]
  - RETINAL DISORDER [None]
  - RETINAL EXUDATES [None]
  - RETINAL HAEMORRHAGE [None]
  - TRANSIENT ISCHAEMIC ATTACK [None]
  - VISUAL ACUITY REDUCED [None]
  - VISUAL ACUITY TESTS ABNORMAL [None]
  - VISUAL DISTURBANCE [None]
  - VISUAL FIELD DEFECT [None]
